FAERS Safety Report 7715999-5 (Version None)
Quarter: 2011Q3

REPORT INFORMATION
  Report Type: 
  Country: None (occurrence: None)
  Receive Date: 20110829
  Receipt Date: 20100916
  Transmission Date: 20111222
  Serious: Yes (Hospitalization)
  Sender: FDA-Public Use
  Company Number: JP-SANTEN INC.-INC-11-000025

PATIENT
  Sex: Female

DRUGS (1)
  1. LEVOFLOXACIN [Suspect]
     Route: 047
     Dates: start: 20100914

REACTIONS (2)
  - ANAPHYLACTIC REACTION [None]
  - HYPERVENTILATION [None]
